FAERS Safety Report 11469706 (Version 1)
Quarter: 2015Q3

REPORT INFORMATION
  Report Type: Spontaneous
  Country: US (occurrence: US)
  Receive Date: 20150908
  Receipt Date: 20150908
  Transmission Date: 20151125
  Serious: No
  Sender: FDA-Public Use
  Company Number: US-JNJFOC-20150815341

PATIENT
  Sex: Female
  Weight: 117.94 kg

DRUGS (4)
  1. ZYRTEC [Suspect]
     Active Substance: CETIRIZINE HYDROCHLORIDE
     Indication: URTICARIA
     Dosage: 4 TABLETS A DAY
     Route: 048
     Dates: start: 20150820
  2. ZYRTEC [Suspect]
     Active Substance: CETIRIZINE HYDROCHLORIDE
     Indication: URTICARIA
     Route: 048
  3. HEART BURN MEDICATION [Concomitant]
     Indication: URTICARIA
     Route: 048
  4. BENADRYL [Concomitant]
     Active Substance: DIPHENHYDRAMINE HYDROCHLORIDE
     Indication: URTICARIA
     Route: 048

REACTIONS (3)
  - Product use issue [Unknown]
  - Overdose [Unknown]
  - Drug ineffective for unapproved indication [Unknown]
